FAERS Safety Report 7983596 (Version 3)
Quarter: 2013Q1

REPORT INFORMATION
  Report Type: Report from Study
  Country: US (occurrence: US)
  Receive Date: 20110609
  Receipt Date: 20130304
  Transmission Date: 20140127
  Serious: Yes (Hospitalization)
  Sender: FDA-Public Use
  Company Number: US-ACTELION-A-US2011-49915

PATIENT
  Age: 73 Year
  Sex: Female

DRUGS (22)
  1. TRACLEER [Suspect]
     Indication: PULMONARY ARTERIAL HYPERTENSION
     Dosage: 125 MG, BID
     Route: 048
  2. ANTIVERT [Concomitant]
  3. ELAVIL [Concomitant]
  4. ELMIRON [Concomitant]
  5. KADIAN [Concomitant]
  6. MAGNESIUM [Concomitant]
  7. PRIMIDONE [Concomitant]
  8. NEXIUM [Concomitant]
  9. PLAVIX [Concomitant]
  10. SYNTHROID [Concomitant]
  11. VENTOLIN [Concomitant]
  12. VESICARE [Concomitant]
  13. VYTORIN [Concomitant]
  14. ASPIRIN [Concomitant]
  15. FLUOXETINE [Concomitant]
  16. LASIX [Concomitant]
  17. ISOSORBIDE [Concomitant]
  18. LABETALOL [Concomitant]
  19. POTASSIUM CHLORIDE [Concomitant]
  20. NITROGLYCERIN [Concomitant]
  21. FLEXERIL [Concomitant]
  22. PREMARIN [Concomitant]

REACTIONS (5)
  - Mental status changes [Recovering/Resolving]
  - Confusional state [Recovering/Resolving]
  - Amnesia [Recovering/Resolving]
  - Cystitis interstitial [Recovering/Resolving]
  - Fall [Recovered/Resolved]
